FAERS Safety Report 5599675-3 (Version None)
Quarter: 2008Q1

REPORT INFORMATION
  Report Type: 
  Country: None (occurrence: None)
  Receive Date: 20080123
  Receipt Date: 20080114
  Transmission Date: 20080703
  Serious: Yes (Hospitalization)
  Sender: FDA-Public Use
  Company Number: FR-JNJFOC-20080102776

PATIENT
  Sex: Male

DRUGS (5)
  1. DURAGESIC-100 [Suspect]
     Indication: SCIATICA
     Route: 062
  2. SOLU-MEDROL [Suspect]
     Indication: SCIATICA
     Route: 048
  3. LOVENOX [Suspect]
     Indication: SCIATICA
     Route: 058
  4. MORPHINE [Suspect]
     Indication: SCIATICA
     Route: 065
  5. KARDEGIC [Concomitant]
     Indication: CAROTID ARTERY STENOSIS
     Route: 048

REACTIONS (1)
  - VASCULAR PURPURA [None]
